FAERS Safety Report 17847735 (Version 1)
Quarter: 2020Q2

REPORT INFORMATION
  Report Type: Spontaneous
  Country: US (occurrence: US)
  Receive Date: 20200601
  Receipt Date: 20200601
  Transmission Date: 20200714
  Serious: Yes (Death, Other)
  Sender: FDA-Public Use
  Company Number: US-009507513-2005USA008765

PATIENT
  Age: 66 Year
  Sex: Male

DRUGS (3)
  1. TICE BCG [Suspect]
     Active Substance: BACILLUS CALMETTE-GUERIN SUBSTRAIN TICE LIVE ANTIGEN
     Dosage: 7 UNK
  2. TICE BCG [Suspect]
     Active Substance: BACILLUS CALMETTE-GUERIN SUBSTRAIN TICE LIVE ANTIGEN
     Dosage: 5 UNK
  3. TICE BCG [Suspect]
     Active Substance: BACILLUS CALMETTE-GUERIN SUBSTRAIN TICE LIVE ANTIGEN
     Indication: BLADDER CANCER
     Dosage: 6 UNK

REACTIONS (15)
  - Sepsis [Fatal]
  - Coma [Fatal]
  - Cardio-respiratory arrest [Fatal]
  - White blood cell count decreased [Unknown]
  - Hepatic enzyme increased [Unknown]
  - Pyrexia [Fatal]
  - Blood fibrinogen decreased [Unknown]
  - Urothelium erosion [Fatal]
  - Disseminated intravascular coagulation [Fatal]
  - Rash [Fatal]
  - Disseminated Bacillus Calmette-Guerin infection [Fatal]
  - Haemoptysis [Fatal]
  - Lethargy [Fatal]
  - Liver injury [Unknown]
  - Platelet count decreased [Unknown]
